FAERS Safety Report 25544752 (Version 1)
Quarter: 2025Q3

REPORT INFORMATION
  Report Type: Spontaneous
  Country: US (occurrence: US)
  Receive Date: 20250711
  Receipt Date: 20250711
  Transmission Date: 20251021
  Serious: No
  Sender: SANOFI AVENTIS
  Company Number: US-SA-2025SA194660

PATIENT
  Sex: Female
  Weight: 77.27 kg

DRUGS (3)
  1. DUPIXENT [Suspect]
     Active Substance: DUPILUMAB
     Indication: Asthma
     Dosage: 300 MG, QOW
     Route: 058
  2. MAGNESIUM OXIDE [Concomitant]
     Active Substance: MAGNESIUM OXIDE
  3. FISH OIL [Concomitant]
     Active Substance: FISH OIL

REACTIONS (6)
  - Pruritus [Unknown]
  - Contusion [Unknown]
  - Erythema [Unknown]
  - Injection site urticaria [Unknown]
  - Dry eye [Unknown]
  - Eye irritation [Unknown]
